FAERS Safety Report 24814193 (Version 1)
Quarter: 2025Q1

REPORT INFORMATION
  Report Type: Spontaneous
  Country: GB (occurrence: GB)
  Receive Date: 20250107
  Receipt Date: 20250107
  Transmission Date: 20250409
  Serious: Yes (Hospitalization)
  Sender: MYLAN
  Company Number: GB-MYLANLABS-2024M1117492

PATIENT
  Age: 12 Year
  Sex: Male

DRUGS (6)
  1. DEXAMETHASONE [Suspect]
     Active Substance: DEXAMETHASONE
     Indication: Germ cell cancer
     Dosage: 8 MILLIGRAM, QD
     Route: 065
  2. DEXAMETHASONE [Suspect]
     Active Substance: DEXAMETHASONE
     Indication: Metastasis
  3. HYDROCORTISONE [Suspect]
     Active Substance: HYDROCORTISONE
     Indication: Germ cell cancer
     Dosage: 9.7 MILLIGRAM/SQ. METER, QD
     Route: 065
  4. HYDROCORTISONE [Suspect]
     Active Substance: HYDROCORTISONE
     Indication: Metastasis
  5. VINBLASTINE [Concomitant]
     Active Substance: VINBLASTINE
     Indication: Germ cell cancer
     Route: 065
  6. VINBLASTINE [Concomitant]
     Active Substance: VINBLASTINE
     Indication: Metastasis

REACTIONS (4)
  - Rebound effect [Recovered/Resolved]
  - Germ cell cancer [Recovered/Resolved]
  - Metastasis [Recovered/Resolved]
  - Drug ineffective [Unknown]
